FAERS Safety Report 13416941 (Version 1)
Quarter: 2020Q3

REPORT INFORMATION
  Report Type: Report from Study
  Country: GB (occurrence: GB)
  Receive Date: 20170406
  Receipt Date: 20170406
  Transmission Date: 20201105
  Serious: Yes (Hospitalization)
  Sender: FDA-Public Use
  Company Number: GB-JNJFOC-20170309750

PATIENT
  Age: 48 Year
  Sex: Female
  Weight: 85.5 kg

DRUGS (4)
  1. PLD [Suspect]
     Active Substance: DOXORUBICIN HYDROCHLORIDE
     Indication: OVARIAN CANCER
     Dosage: INTENDED DOSE 30 (UNITS NOT SPECIFIED) AND ADMINISTERED DOSE 60 (UNITS NOT SPECIFIED).
     Route: 042
     Dates: start: 20170224
  2. TRABECTEDIN [Suspect]
     Active Substance: TRABECTEDIN
     Indication: OVARIAN CANCER
     Dosage: INTENDED DOSE 1.1 (UNITS NOT SPECIFIED) AND ADMINISTERED DOSE 2.02 (UNITS NOT SPECIFIED).
     Route: 042
     Dates: start: 20170228
  3. PLD [Suspect]
     Active Substance: DOXORUBICIN HYDROCHLORIDE
     Route: 042
  4. TRABECTEDIN [Suspect]
     Active Substance: TRABECTEDIN
     Route: 042

REACTIONS (2)
  - Nausea [Recovered/Resolved]
  - Colon cancer [Not Recovered/Not Resolved]

NARRATIVE: CASE EVENT DATE: 20170302
